FAERS Safety Report 16895987 (Version 1)
Quarter: 2019Q4

REPORT INFORMATION
  Report Type: Spontaneous
  Country: US (occurrence: US)
  Receive Date: 20191008
  Receipt Date: 20191008
  Transmission Date: 20200122
  Serious: No
  Sender: FDA-Public Use
  Company Number: US-PERRIGO-19US001652

PATIENT
  Age: 72 Year
  Sex: Male
  Weight: 90.7 kg

DRUGS (7)
  1. CIALIS [Concomitant]
     Active Substance: TADALAFIL
     Indication: PROSTATOMEGALY
     Dosage: UNK
     Route: 065
  2. FINASTERIDE. [Concomitant]
     Active Substance: FINASTERIDE
     Indication: PROSTATOMEGALY
     Dosage: UNK
     Route: 065
  3. ERYTHROMYCIN. [Suspect]
     Active Substance: ERYTHROMYCIN
     Indication: PROPHYLAXIS
     Dosage: 1 APPLICATION TO SKIN ON RIGHT SIDE OF RIGHT EYE, SEVERAL TIMES DAILY
     Route: 061
     Dates: start: 201901, end: 201901
  4. LOSARTAN. [Concomitant]
     Active Substance: LOSARTAN
     Indication: HYPERTENSION
     Dosage: UNK
     Route: 065
  5. ERYTHROMYCIN. [Suspect]
     Active Substance: ERYTHROMYCIN
     Indication: OCULAR HYPERAEMIA
     Dosage: 1 APPLICATION, BID
     Route: 047
     Dates: start: 20190130, end: 20190131
  6. AMOXICILLIN. [Concomitant]
     Active Substance: AMOXICILLIN
     Indication: PHARYNGITIS STREPTOCOCCAL
     Dosage: UNK
     Route: 065
     Dates: start: 20190130
  7. AMOXICILLIN. [Concomitant]
     Active Substance: AMOXICILLIN
     Indication: NASAL CONGESTION

REACTIONS (5)
  - Vision blurred [Recovered/Resolved]
  - Condition aggravated [Recovering/Resolving]
  - Off label use [Recovered/Resolved]
  - Eye irritation [Recovered/Resolved]
  - Incorrect route of product administration [Recovered/Resolved]

NARRATIVE: CASE EVENT DATE: 201901
